FAERS Safety Report 17238505 (Version 1)
Quarter: 2020Q1

REPORT INFORMATION
  Report Type: Spontaneous
  Country: US (occurrence: US)
  Receive Date: 20200106
  Receipt Date: 20200106
  Transmission Date: 20200409
  Serious: No
  Sender: FDA-Public Use
  Company Number: US-BIOMARINAP-US-2019-127496

PATIENT
  Age: 5 Year
  Sex: Male
  Weight: 19.2 kg

DRUGS (1)
  1. VIMIZIM [Suspect]
     Active Substance: ELOSULFASE ALFA
     Indication: PRODUCT USED FOR UNKNOWN INDICATION
     Dosage: UNK, QW
     Route: 042
     Dates: start: 20190628

REACTIONS (2)
  - Gait disturbance [Not Recovered/Not Resolved]
  - Knee deformity [Not Recovered/Not Resolved]
